FAERS Safety Report 4596352-2 (Version None)
Quarter: 2005Q1

REPORT INFORMATION
  Report Type: 
  Country: None (occurrence: None)
  Receive Date: 20050225
  Receipt Date: 20050217
  Transmission Date: 20050727
  Serious: No
  Sender: FDA-Public Use
  Company Number: 2005UW02742

PATIENT
  Age: 70 Year
  Sex: Female

DRUGS (6)
  1. CRESTOR [Suspect]
     Dosage: 10 MG DAILY PO
     Route: 048
  2. ATENOLOL [Concomitant]
  3. COVERSYL [Concomitant]
  4. ELTROXIN [Concomitant]
  5. NOVAMILOR [Concomitant]
  6. WARFARIN SODIUM [Concomitant]

REACTIONS (3)
  - DIFFICULTY IN WALKING [None]
  - MYALGIA [None]
  - PAIN IN EXTREMITY [None]
